FAERS Safety Report 5264483-X (Version None)
Quarter: 2007Q1

REPORT INFORMATION
  Report Type: 
  Country: None (occurrence: None)
  Receive Date: 20070302
  Receipt Date: 20070221
  Transmission Date: 20070707
  Serious: Yes (Other)
  Sender: FDA-Public Use
  Company Number: 2007308071

PATIENT
  Sex: Female

DRUGS (1)
  1. ROGAINE [Suspect]
     Indication: ALOPECIA
     Dosage: 20 MG BID (20 MG, 2 IN 1 D), TOPICAL
     Route: 061

REACTIONS (2)
  - CHEMICAL BURN OF SKIN [None]
  - DERMATITIS CONTACT [None]
